FAERS Safety Report 17921858 (Version 1)
Quarter: 2020Q2

REPORT INFORMATION
  Report Type: Spontaneous
  Country: US (occurrence: US)
  Receive Date: 20200619
  Receipt Date: 20200619
  Transmission Date: 20200714
  Serious: Yes (Hospitalization)
  Sender: FDA-Public Use
  Company Number: None

PATIENT
  Sex: Male
  Weight: 89.81 kg

DRUGS (2)
  1. BICALUTAMIDE. [Suspect]
     Active Substance: BICALUTAMIDE
     Dates: end: 20190731
  2. LEUPROLIDE [Suspect]
     Active Substance: LEUPROLIDE
     Dates: end: 20190731

REACTIONS (2)
  - Atrial fibrillation [None]
  - Ventricular tachycardia [None]

NARRATIVE: CASE EVENT DATE: 20200127
